FAERS Safety Report 21492842 (Version 2)
Quarter: 2022Q4

REPORT INFORMATION
  Report Type: Spontaneous
  Country: IN (occurrence: IN)
  Receive Date: 20221021
  Receipt Date: 20221124
  Transmission Date: 20230112
  Serious: Yes (Death, Other)
  Sender: FDA-Public Use
  Company Number: IN-PFIZER INC-2019523277

PATIENT
  Age: 65 Year
  Sex: Female

DRUGS (3)
  1. PALBOCICLIB [Suspect]
     Active Substance: PALBOCICLIB
     Indication: Breast cancer metastatic
     Dosage: 125 MG, 1X/DAY
     Route: 048
     Dates: start: 20171016
  2. PALBOCICLIB [Suspect]
     Active Substance: PALBOCICLIB
     Dosage: 125 MG, 1X/DAY
     Route: 048
     Dates: start: 20181005
  3. FASLODEX [Concomitant]
     Active Substance: FULVESTRANT
     Dosage: 500 MG, MONTHLY (500MG IM ONCE EVERY MONTH X 3 MONTH)
     Route: 030

REACTIONS (7)
  - Death [Fatal]
  - Carbohydrate antigen 15-3 increased [Unknown]
  - Dysphonia [Unknown]
  - Vocal cord paralysis [Unknown]
  - Neoplasm progression [Unknown]
  - Cough [Unknown]
  - Productive cough [Unknown]
